FAERS Safety Report 16426208 (Version 1)
Quarter: 2019Q2

REPORT INFORMATION
  Report Type: Other
  Country: DE (occurrence: DE)
  Receive Date: 20190613
  Receipt Date: 20190613
  Transmission Date: 20190711
  Serious: Yes (Other)
  Sender: FDA-Public Use
  Company Number: DE-MACLEODS PHARMACEUTICALS US LTD-MAC2019021629

PATIENT

DRUGS (2)
  1. LEVOFLOXACIN. [Suspect]
     Active Substance: LEVOFLOXACIN
     Indication: PRODUCT USED FOR UNKNOWN INDICATION
     Dosage: UNK, 6 X 800 MG
     Route: 048
     Dates: start: 20140210, end: 20140228
  2. CIPROFLOXACIN. [Suspect]
     Active Substance: CIPROFLOXACIN
     Indication: PRODUCT USED FOR UNKNOWN INDICATION
     Dosage: 500 MILLIGRAM, BID
     Route: 065

REACTIONS (23)
  - Muscle twitching [Recovered/Resolved]
  - Trigeminal neuralgia [Recovered/Resolved]
  - Fatigue [Recovered/Resolved]
  - Hypersomnia [Unknown]
  - Insomnia [Recovered/Resolved]
  - Migraine [Recovered/Resolved]
  - Gait disturbance [Recovered/Resolved]
  - Myalgia [Recovered/Resolved]
  - Nervousness [Recovered/Resolved]
  - Neuralgia [Recovered/Resolved]
  - Restlessness [Recovered/Resolved]
  - Narcolepsy [Recovered/Resolved]
  - Memory impairment [Recovered/Resolved]
  - Headache [Recovered/Resolved]
  - Muscle spasms [Recovered/Resolved]
  - Pain [Recovered/Resolved]
  - Tendon pain [Recovered/Resolved]
  - Arthralgia [Recovered/Resolved]
  - Depression [Recovered/Resolved]
  - Musculoskeletal stiffness [Unknown]
  - Muscle atrophy [Recovered/Resolved]
  - Tendon pain [Recovered/Resolved]
  - Visual impairment [Recovered/Resolved]

NARRATIVE: CASE EVENT DATE: 20140213
